FAERS Safety Report 5024984-6 (Version None)
Quarter: 2006Q2

REPORT INFORMATION
  Report Type: 
  Country: None (occurrence: None)
  Receive Date: 20060607
  Receipt Date: 20060522
  Transmission Date: 20061013
  Serious: Yes (Hospitalization)
  Sender: FDA-Public Use
  Company Number: 2006-DE-02619GD

PATIENT
  Age: 51 Year
  Sex: Male

DRUGS (1)
  1. MORPHINE [Suspect]
     Indication: ABDOMINAL PAIN

REACTIONS (1)
  - PANCREATOLITHIASIS [None]
